FAERS Safety Report 4322786-7 (Version None)
Quarter: 2004Q1

REPORT INFORMATION
  Report Type: 
  Country: None (occurrence: None)
  Receive Date: 20040324
  Receipt Date: 20040316
  Transmission Date: 20041129
  Serious: Yes (Life-Threatening)
  Sender: FDA-Public Use
  Company Number: DE-ROCHE-361897

PATIENT
  Age: 76 Year
  Sex: Female
  Weight: 93 kg

DRUGS (10)
  1. CAPECITABINE [Suspect]
     Indication: DRUG USE FOR UNKNOWN INDICATION
     Route: 065
     Dates: start: 20030222, end: 20030307
  2. CAPECITABINE [Suspect]
     Route: 065
     Dates: start: 20030315, end: 20030328
  3. CAPECITABINE [Suspect]
     Route: 065
     Dates: start: 20030405, end: 20030418
  4. CAPECITABINE [Suspect]
     Route: 065
     Dates: start: 20030514, end: 20030526
  5. CAPECITABINE [Suspect]
     Route: 065
     Dates: start: 20030603, end: 20030616
  6. CAPECITABINE [Suspect]
     Route: 065
     Dates: start: 20030624, end: 20030707
  7. CAPECITABINE [Suspect]
     Route: 065
     Dates: start: 20030715, end: 20030721
  8. CAPECITABINE [Suspect]
     Route: 065
     Dates: start: 20030805, end: 20030811
  9. CAPECITABINE [Suspect]
     Route: 065
     Dates: start: 20030905, end: 20030918
  10. CAPECITABINE [Suspect]
     Route: 065
     Dates: start: 20030926, end: 20031009

REACTIONS (3)
  - CARDIAC FAILURE [None]
  - HUMERUS FRACTURE [None]
  - PULMONARY EMBOLISM [None]
